FAERS Safety Report 4749149-4 (Version None)
Quarter: 2005Q3

REPORT INFORMATION
  Report Type: 
  Country: None (occurrence: None)
  Receive Date: 20050817
  Receipt Date: 20050812
  Transmission Date: 20060218
  Serious: Yes (Death, Hospitalization)
  Sender: FDA-Public Use
  Company Number: 2005FR-00230

PATIENT
  Age: 64 Year
  Sex: Male

DRUGS (12)
  1. ASPIRIN [Suspect]
     Indication: CEREBROVASCULAR ACCIDENT
     Dosage: 75 MG, OD, ORAL
     Route: 048
     Dates: end: 20050711
  2. CLOPIDOGREL [Concomitant]
  3. MORPHINE SULFATE [Concomitant]
  4. ORAMORPH SR [Concomitant]
  5. VALPROATE SODIUM [Concomitant]
  6. FLUOXETINE [Concomitant]
  7. OMEPRAZOLE [Concomitant]
  8. SIMVASTATIN [Concomitant]
  9. EICOPLANIN [Concomitant]
  10. CIPROXLOXACIN [Concomitant]
  11. FERROUS SULFATE TAB [Concomitant]
  12. PARACETAMOL [Concomitant]

REACTIONS (1)
  - POST PROCEDURAL HAEMORRHAGE [None]
